FAERS Safety Report 13818983 (Version 2)
Quarter: 2018Q1

REPORT INFORMATION
  Report Type: Report from Study
  Country: FR (occurrence: FR)
  Receive Date: 20170731
  Receipt Date: 20180201
  Transmission Date: 20180508
  Serious: No
  Sender: FDA-Public Use
  Company Number: FR-EXELIXIS-CABO-16007813

PATIENT
  Age: 61 Year
  Sex: Male
  Weight: 63 kg

DRUGS (6)
  1. CABOMETYX [Suspect]
     Active Substance: CABOZANTINIB S-MALATE
     Indication: METASTATIC RENAL CELL CARCINOMA
     Dosage: 60 MG, QD
     Route: 048
     Dates: start: 20161114, end: 20161213
  2. MEDROL [Concomitant]
     Active Substance: METHYLPREDNISOLONE
     Indication: INTERSTITIAL LUNG DISEASE
  3. LEVOTHYROX [Concomitant]
     Active Substance: LEVOTHYROXINE
     Indication: HYPOTHYROIDISM
  4. XARELTO [Concomitant]
     Active Substance: RIVAROXABAN
     Indication: EMBOLISM
  5. PROCORALAN [Concomitant]
     Active Substance: IVABRADINE
     Indication: ANGINA PECTORIS
  6. TAHOR [Concomitant]
     Active Substance: ATORVASTATIN CALCIUM
     Indication: THROMBOSIS PROPHYLAXIS

REACTIONS (13)
  - Neutropenia [Unknown]
  - Blood bilirubin increased [Unknown]
  - Fungal infection [Unknown]
  - Asthenia [Unknown]
  - Aspartate aminotransferase increased [Unknown]
  - Eastern Cooperative Oncology Group performance status worsened [Unknown]
  - Dry skin [Unknown]
  - Blood magnesium decreased [Unknown]
  - Herpes virus infection [Unknown]
  - Dysphonia [Unknown]
  - Cell death [Unknown]
  - Diarrhoea [Unknown]
  - Alanine aminotransferase increased [Unknown]

NARRATIVE: CASE EVENT DATE: 201612
